FAERS Safety Report 11290659 (Version 1)
Quarter: 2015Q3

REPORT INFORMATION
  Report Type: Spontaneous
  Country: US (occurrence: None)
  Receive Date: 20150720
  Receipt Date: 20150720
  Transmission Date: 20151125
  Serious: No
  Sender: FDA-Public Use
  Company Number: None

PATIENT
  Age: 56 Year
  Sex: Female

DRUGS (7)
  1. AFINITOR [Suspect]
     Active Substance: EVEROLIMUS
     Indication: METASTATIC NEOPLASM
     Route: 048
     Dates: start: 20150421, end: 20150617
  2. DIAZEPAM. [Concomitant]
     Active Substance: DIAZEPAM
  3. OMEPRAZOLE. [Concomitant]
     Active Substance: OMEPRAZOLE
  4. NORCO [Concomitant]
     Active Substance: ACETAMINOPHEN\HYDROCODONE BITARTRATE
  5. LORAZEPAM. [Concomitant]
     Active Substance: LORAZEPAM
  6. FENTANYL. [Concomitant]
     Active Substance: FENTANYL
  7. HYDROCO/APAP [Concomitant]
     Active Substance: ACETAMINOPHEN\HYDROCODONE

REACTIONS (1)
  - Drug ineffective [None]

NARRATIVE: CASE EVENT DATE: 20150617
